FAERS Safety Report 22048327 (Version 2)
Quarter: 2023Q4

REPORT INFORMATION
  Report Type: Spontaneous
  Country: US (occurrence: None)
  Receive Date: 20230301
  Receipt Date: 20231106
  Transmission Date: 20240110
  Serious: Yes (Hospitalization)
  Sender: FDA-Public Use
  Company Number: 2023A044144

PATIENT
  Sex: Male
  Weight: 93.9 kg

DRUGS (1)
  1. BREZTRI [Suspect]
     Active Substance: BUDESONIDE\FORMOTEROL\GLYCOPYRROLATE
     Indication: Chronic obstructive pulmonary disease
     Dosage: 160/9/4.8MCG, 2 PUFFS IN MORNING AND 2 NIGHT
     Route: 055

REACTIONS (8)
  - Seizure [Unknown]
  - Visual impairment [Unknown]
  - Diplopia [Unknown]
  - Vision blurred [Unknown]
  - Oropharyngeal discomfort [Unknown]
  - Product use issue [Unknown]
  - Device malfunction [Unknown]
  - Device defective [Unknown]
